FAERS Safety Report 5266069-X (Version None)
Quarter: 2007Q1

REPORT INFORMATION
  Report Type: 
  Country: None (occurrence: None)
  Receive Date: 20070315
  Receipt Date: 20070313
  Transmission Date: 20070707
  Serious: Yes (Hospitalization)
  Sender: FDA-Public Use
  Company Number: US-BRISTOL-MYERS SQUIBB COMPANY-13712286

PATIENT
  Age: 55 Year
  Sex: Female

DRUGS (1)
  1. DASATINIB [Suspect]
     Indication: BREAST CANCER
     Route: 048
     Dates: start: 20070310

REACTIONS (2)
  - DEHYDRATION [None]
  - DIARRHOEA [None]
